FAERS Safety Report 8520109 (Version 2)
Quarter: 2012Q4

REPORT INFORMATION
  Report Type: 
  Country: US (occurrence: US)
  Receive Date: 20120418
  Receipt Date: 20121013
  Transmission Date: 20130627
  Serious: Yes (Other)
  Sender: FDA-Public Use
  Company Number: US-US-EMD SERONO, INC.-7125423

PATIENT
  Age: 27 None
  Sex: Female

DRUGS (2)
  1. REBIF [Suspect]
     Indication: MULTIPLE SCLEROSIS
     Dates: end: 201111
  2. REBIF [Suspect]
     Route: 058
     Dates: start: 20111212

REACTIONS (3)
  - Abortion spontaneous [Recovered/Resolved]
  - Injection site pruritus [Not Recovered/Not Resolved]
  - Maternal exposure timing unspecified [Recovered/Resolved]
